FAERS Safety Report 18709261 (Version 3)
Quarter: 2021Q1

REPORT INFORMATION
  Report Type: Spontaneous
  Country: US (occurrence: US)
  Receive Date: 20210106
  Receipt Date: 20210113
  Transmission Date: 20210419
  Serious: Yes (Other)
  Sender: FDA-Public Use
  Company Number: US-PFIZER INC-2020516767

PATIENT
  Age: 43 Year
  Sex: Female
  Weight: 56.7 kg

DRUGS (1)
  1. EPIPEN [Suspect]
     Active Substance: EPINEPHRINE
     Indication: HYPERSENSITIVITY
     Dosage: 0.3 MG
     Dates: start: 20201226

REACTIONS (2)
  - Drug ineffective [Unknown]
  - Blood pressure increased [Unknown]
